FAERS Safety Report 5788390-9 (Version None)
Quarter: 2008Q2

REPORT INFORMATION
  Report Type: 
  Country: None (occurrence: None)
  Receive Date: 20080625
  Receipt Date: 20080617
  Transmission Date: 20081010
  Serious: Yes (Other)
  Sender: FDA-Public Use
  Company Number: US-PFIZER INC-2008050945

PATIENT
  Sex: Male
  Weight: 79.545 kg

DRUGS (4)
  1. AMLODIPINE [Suspect]
     Indication: HYPERTENSION
     Dates: start: 20070709, end: 20080427
  2. UROXATRAL [Concomitant]
     Indication: PROSTATIC DISORDER
  3. COMBIGAN [Concomitant]
     Indication: GLAUCOMA
  4. ACIPHEX [Concomitant]
     Indication: GASTROOESOPHAGEAL REFLUX DISEASE

REACTIONS (4)
  - JOINT STIFFNESS [None]
  - LIP AND/OR ORAL CAVITY CANCER [None]
  - SWELLING [None]
  - WEIGHT INCREASED [None]
